FAERS Safety Report 25052442 (Version 1)
Quarter: 2025Q1

REPORT INFORMATION
  Report Type: Spontaneous
  Country: US (occurrence: US)
  Receive Date: 20250307
  Receipt Date: 20250307
  Transmission Date: 20250408
  Serious: No
  Sender: GALDERMA
  Company Number: US-GALDERMA-US2024018983

PATIENT

DRUGS (8)
  1. PROACTIV MD ADAPALENE ACNE TREATMENT [Suspect]
     Active Substance: ADAPALENE
     Indication: Acne
     Route: 061
     Dates: start: 20241210, end: 202412
  2. Proactiv MD Ultra Gentle Cleanser [Concomitant]
     Indication: Acne
     Route: 061
     Dates: start: 20241210, end: 202412
  3. COSMETICS [Concomitant]
     Active Substance: COSMETICS
     Indication: Acne
     Route: 061
     Dates: start: 20241210, end: 202412
  4. PROACTIV SOLUTION BLACKHEAD DISSOLVING [Concomitant]
     Active Substance: SALICYLIC ACID
     Indication: Acne
     Route: 061
     Dates: start: 20241210, end: 202412
  5. Proactiv Smooth + Bright Resurfacing Mask [Concomitant]
     Indication: Acne
     Route: 061
     Dates: start: 20241210, end: 202412
  6. Proactiv Zits Happen Patches [Concomitant]
     Indication: Acne
     Route: 061
     Dates: start: 20241210, end: 202412
  7. COSMETICS [Concomitant]
     Active Substance: COSMETICS
     Indication: Acne
     Route: 061
     Dates: start: 20241210, end: 202412
  8. COSMETICS [Concomitant]
     Active Substance: COSMETICS
     Indication: Acne
     Route: 061
     Dates: start: 20241210, end: 202412

REACTIONS (2)
  - Skin burning sensation [Unknown]
  - Pain of skin [Unknown]

NARRATIVE: CASE EVENT DATE: 20241201
